FAERS Safety Report 5712695-0 (Version None)
Quarter: 2008Q2

REPORT INFORMATION
  Report Type: 
  Country: None (occurrence: None)
  Receive Date: 20080418
  Receipt Date: 20080414
  Transmission Date: 20081010
  Serious: Yes (Other)
  Sender: FDA-Public Use
  Company Number: CHPA2008US06621

PATIENT
  Age: 65 Year
  Sex: Female
  Weight: 59 kg

DRUGS (3)
  1. EXCEDRIN (MIGRAINE) [Suspect]
     Indication: HEADACHE
     Dosage: 6 DF, QD, ORAL
     Route: 048
  2. ATENOLOL [Concomitant]
  3. LISINOPRIL [Concomitant]

REACTIONS (2)
  - BLOOD CHOLESTEROL DECREASED [None]
  - DRUG DEPENDENCE [None]
